FAERS Safety Report 8335801-0 (Version None)
Quarter: 2012Q2

REPORT INFORMATION
  Report Type: 
  Country: None (occurrence: None)
  Receive Date: 20120504
  Receipt Date: 20100316
  Transmission Date: 20120825
  Serious: Yes (Other)
  Sender: FDA-Public Use
  Company Number: US-BAYER-201014972NA

PATIENT
  Age: 65 Year
  Sex: Female
  Weight: 68.934 kg

DRUGS (50)
  1. MAGNEVIST [Suspect]
     Indication: NUCLEAR MAGNETIC RESONANCE IMAGING ABDOMINAL
     Dosage: 10 ML, UNK
     Dates: start: 20060622, end: 20060622
  2. OMNISCAN [Suspect]
     Indication: ANGIOGRAM
     Dosage: UNK
     Dates: start: 20021209, end: 20021209
  3. PROHANCE [Suspect]
     Indication: NUCLEAR MAGNETIC RESONANCE IMAGING
  4. PROGRAF [Concomitant]
  5. PROCRIT [Concomitant]
  6. PREDNISONE TAB [Concomitant]
  7. OPTIMARK [Suspect]
     Indication: NUCLEAR MAGNETIC RESONANCE IMAGING
  8. ZOCOR [Concomitant]
  9. EDECRIN [Concomitant]
  10. DILTIAZEM [Concomitant]
  11. OPTIMARK [Suspect]
     Indication: ANGIOGRAM
  12. OMNISCAN [Suspect]
     Indication: NUCLEAR MAGNETIC RESONANCE IMAGING THORACIC
     Dosage: UNK
     Dates: start: 20020724, end: 20020724
  13. MULTIHANCE [Suspect]
     Indication: NUCLEAR MAGNETIC RESONANCE IMAGING
  14. ASPIRIN [Concomitant]
  15. COLCHICINE [Concomitant]
  16. DIOVAN [Concomitant]
  17. NIACIN [Concomitant]
  18. ACCUPRIL [Concomitant]
  19. KLONOPIN [Concomitant]
  20. PHOSPHATE [PHOSPHORIC ACID SODIUM] [Concomitant]
  21. OMNISCAN [Suspect]
     Indication: AORTOGRAM
     Dosage: UNK
     Dates: start: 20021112, end: 20021112
  22. MYCOPHENOLATE MOFETIL (CELLCEPT) [Concomitant]
  23. TAZTIA XT [Concomitant]
  24. ZETIA [Concomitant]
  25. COZAAR [Concomitant]
  26. TOPROL-XL [Concomitant]
  27. PROHANCE [Suspect]
     Indication: ANGIOGRAM
  28. MYFORTIC [Concomitant]
  29. COUMADIN [Concomitant]
  30. LOVASTATIN [Concomitant]
  31. ARANESP [Concomitant]
  32. PRANDIN [Concomitant]
  33. MAGNEVIST [Suspect]
     Indication: NUCLEAR MAGNETIC RESONANCE IMAGING
     Dosage: 15 ML, UNK
     Dates: start: 20050225, end: 20050225
  34. OMNISCAN [Suspect]
     Indication: NUCLEAR MAGNETIC RESONANCE IMAGING ABDOMINAL
     Dosage: UNK
     Dates: start: 20020709, end: 20020709
  35. OMNISCAN [Suspect]
     Dosage: 35 ML, UNK
     Dates: start: 20040225, end: 20040225
  36. MAGNESIUM OXIDE [Concomitant]
  37. CRESTOR [Concomitant]
  38. CALCIUM CARBONATE [Concomitant]
  39. FUROSEMIDE [Concomitant]
  40. AVANDIA [Concomitant]
  41. OMNISCAN [Suspect]
     Dosage: UNK
     Dates: start: 20040124, end: 20040124
  42. MULTIHANCE [Suspect]
     Indication: ANGIOGRAM
  43. DAPSONE [Concomitant]
  44. WELCHOL [Concomitant]
  45. LIPITOR [Concomitant]
  46. ELEMENTAL FE [Concomitant]
  47. LANTUS [Concomitant]
  48. NOVOLOG [Concomitant]
  49. GABAPENTIN [Concomitant]
  50. NORVASC [Concomitant]

REACTIONS (13)
  - SKIN HYPERTROPHY [None]
  - SKIN SWELLING [None]
  - OEDEMA PERIPHERAL [None]
  - GAIT DISTURBANCE [None]
  - PRURITUS [None]
  - SKIN DISCOLOURATION [None]
  - MUSCULOSKELETAL STIFFNESS [None]
  - NEPHROGENIC SYSTEMIC FIBROSIS [None]
  - SKIN INDURATION [None]
  - MUSCULAR WEAKNESS [None]
  - PAIN [None]
  - JOINT RANGE OF MOTION DECREASED [None]
  - SKIN TIGHTNESS [None]
